FAERS Safety Report 26106048 (Version 3)
Quarter: 2025Q4

REPORT INFORMATION
  Report Type: Report from Study
  Country: BR (occurrence: BR)
  Receive Date: 20251201
  Receipt Date: 20251230
  Transmission Date: 20260117
  Serious: No
  Sender: BIOGEN
  Company Number: BR-BIOGEN-2093064

PATIENT
  Age: 30 Year
  Sex: Female

DRUGS (1)
  1. TYSABRI [Suspect]
     Active Substance: NATALIZUMAB
     Indication: Multiple sclerosis
     Dosage: DOSE: 300MG/15ML

REACTIONS (2)
  - Product quality issue [Unknown]
  - Hypersensitivity [Unknown]
